FAERS Safety Report 9172789 (Version 1)
Quarter: 2012Q4

REPORT INFORMATION
  Report Type: Report from Study
  Country: GB (occurrence: GB)
  Receive Date: 20120911
  Receipt Date: 20120911
  Transmission Date: 20130627
  Serious: Yes (Hospitalization)
  Sender: FDA-Public Use
  Company Number: GB-ROCHE-1119479

PATIENT
  Sex: Female
  Weight: 54 kg

DRUGS (3)
  1. MABTHERA [Suspect]
     Indication: PRODUCT USED FOR UNKNOWN INDICATION
     Dosage: last dose taken on 30/Apr/2012
     Route: 065
     Dates: start: 20090610
  2. METHOTREXATE [Concomitant]
  3. STEROIDS - UNKNOWN TYPE [Concomitant]

REACTIONS (2)
  - Endocarditis [Unknown]
  - Temporal arteritis [Not Recovered/Not Resolved]
